FAERS Safety Report 9035378 (Version 1)
Quarter: 2013Q1

REPORT INFORMATION
  Report Type: Report from Study
  Country: US (occurrence: US)
  Receive Date: 20130129
  Receipt Date: 20130129
  Transmission Date: 20140127
  Serious: No
  Sender: FDA-Public Use
  Company Number: US-ABBOTT-12P-163-0899377-00

PATIENT
  Age: 64 Year
  Sex: Male

DRUGS (4)
  1. HUMIRA 40 MG/0.8 ML PEN [Suspect]
     Indication: PSORIASIS
     Dates: start: 20111112
  2. PREVACID [Concomitant]
     Indication: GASTROOESOPHAGEAL REFLUX DISEASE
  3. VERAPAMIL ER [Concomitant]
     Indication: BLOOD PRESSURE
  4. AMITRIPTYLINE [Concomitant]
     Indication: BLOOD PRESSURE
     Dosage: 1 IN 1 D, AT BEDTIME

REACTIONS (1)
  - Chest pain [Recovered/Resolved]
